FAERS Safety Report 9715332 (Version 1)
Quarter: 2013Q4

REPORT INFORMATION
  Report Type: Spontaneous
  Country: MX (occurrence: MX)
  Receive Date: 20131127
  Receipt Date: 20131127
  Transmission Date: 20140711
  Serious: Yes (Hospitalization, Other)
  Sender: FDA-Public Use
  Company Number: MX-AMGEN-MEXSP2013083395

PATIENT
  Age: 70 Year
  Sex: Female

DRUGS (6)
  1. NEULASTIM [Suspect]
     Indication: NEUTROPENIA
     Dosage: 6 MG/DAY
     Route: 065
  2. NEULASTIM [Suspect]
     Indication: FEBRILE NEUTROPENIA
  3. AVASTIN /01555201/ [Suspect]
     Indication: COLORECTAL CANCER METASTATIC
     Dosage: UNK UNK, 1 IN 2 WK
     Route: 065
  4. 5-FLUOROURACIL                     /00098801/ [Concomitant]
     Indication: COLORECTAL CANCER METASTATIC
     Dosage: UNK UNK, 1 IN 2 WK
  5. LEUCOVORIN                         /00566702/ [Concomitant]
     Indication: COLORECTAL CANCER METASTATIC
     Dosage: UNK UNK, 1 IN 2 WK
  6. IRINOTECAN                         /01280202/ [Concomitant]
     Indication: COLORECTAL CANCER METASTATIC
     Dosage: UNK UNK, 1 IN 2 WK

REACTIONS (3)
  - Neutropenia [Unknown]
  - Febrile neutropenia [Unknown]
  - Disease progression [Unknown]
